FAERS Safety Report 8106263-3 (Version None)
Quarter: 2011Q4

REPORT INFORMATION
  Report Type: 
  Country: None (occurrence: None)
  Receive Date: 20111222
  Receipt Date: 20111031
  Transmission Date: 20120403
  Serious: Yes (Hospitalization)
  Sender: FDA-Public Use
  Company Number: UTC-011799

PATIENT
  Age: 43 Year
  Sex: Female
  Weight: 65.9 kg

DRUGS (3)
  1. ASPIRIN [Concomitant]
  2. TYVASO [Suspect]
     Indication: COR PULMONALE CHRONIC
     Dosage: 216 MCG (54 MCG,4 IN 1 D),INHALATION
     Route: 055
     Dates: start: 20100507
  3. LETAIRIS [Concomitant]

REACTIONS (1)
  - CHEST PAIN [None]
